FAERS Safety Report 7198171-X (Version None)
Quarter: 2010Q4

REPORT INFORMATION
  Report Type: 
  Country: None (occurrence: None)
  Receive Date: 20101213
  Receipt Date: 20101127
  Transmission Date: 20110411
  Serious: Yes (Other)
  Sender: FDA-Public Use
  Company Number: GB-ACCORD-005323

PATIENT
  Age: 60 Year
  Sex: Male

DRUGS (8)
  1. TACROLIMUS [Suspect]
     Indication: IMMUNOSUPPRESSANT DRUG THERAPY
     Dosage: ORAL
     Route: 048
  2. PREDNISOLONE [Concomitant]
  3. ACYCLOVIR [Concomitant]
  4. TRIMETHOPRIM + SULFAMETHOXAZOLE [Concomitant]
  5. FLUCONAZOLE [Concomitant]
  6. MEPROPEN [Concomitant]
  7. FAMOTIDINE [Concomitant]
  8. MYCOPHENOLATE MOFETIL [Concomitant]

REACTIONS (4)
  - DELIRIUM [None]
  - HAEMOLYSIS [None]
  - RENAL IMPAIRMENT [None]
  - THROMBOTIC MICROANGIOPATHY [None]
